FAERS Safety Report 7397476-7 (Version None)
Quarter: 2011Q2

REPORT INFORMATION
  Report Type: 
  Country: None (occurrence: None)
  Receive Date: 20110401
  Receipt Date: 20110401
  Transmission Date: 20111010
  Serious: Yes (Disabling)
  Sender: FDA-Public Use
  Company Number: None

PATIENT
  Age: 59 Year
  Sex: Male
  Weight: 90.7194 kg

DRUGS (1)
  1. ALLOPURINOL [Suspect]
     Indication: GOUT
     Dosage: 300MG 1/DAY MOUTH/047  WEEK AND HALF
     Route: 048

REACTIONS (3)
  - MYALGIA [None]
  - IMPAIRED WORK ABILITY [None]
  - INSOMNIA [None]
